FAERS Safety Report 4532659-2 (Version None)
Quarter: 2004Q4

REPORT INFORMATION
  Report Type: 
  Country: None (occurrence: None)
  Receive Date: 20041221
  Receipt Date: 20040917
  Transmission Date: 20050328
  Serious: Yes (Other)
  Sender: FDA-Public Use
  Company Number: PHHO2004NZ13155

PATIENT
  Age: 58 Year
  Sex: Male

DRUGS (1)
  1. CLOZARIL [Suspect]
     Indication: SCHIZOPHRENIA
     Route: 048
     Dates: start: 19940601, end: 20041021

REACTIONS (4)
  - APLASTIC ANAEMIA [None]
  - BONE MARROW DISORDER [None]
  - COLORECTAL CANCER METASTATIC [None]
  - NEUTROPENIA [None]
